FAERS Safety Report 8435616-9 (Version None)
Quarter: 2012Q2

REPORT INFORMATION
  Report Type: 
  Country: None (occurrence: None)
  Receive Date: 20120614
  Receipt Date: 20120606
  Transmission Date: 20120825
  Serious: Yes (Life-Threatening, Other)
  Sender: FDA-Public Use
  Company Number: US-ROXANE LABORATORIES, INC.-2012-RO-01372RO

PATIENT
  Age: 45 Year
  Sex: Male

DRUGS (5)
  1. DESIPRAMINE HCL [Suspect]
     Indication: INSOMNIA
     Dosage: 10 MG
  2. METHADONE HCL [Suspect]
     Indication: ABDOMINAL PAIN
     Dosage: 90 MG
     Route: 048
  3. METHADONE HCL [Suspect]
     Indication: BACK PAIN
  4. METHADONE HCL [Suspect]
     Indication: NECK PAIN
  5. DULOXETIME HYDROCHLORIDE [Suspect]
     Indication: DEPRESSION
     Dosage: 60 MG

REACTIONS (2)
  - NEPHROLITHIASIS [None]
  - SEROTONIN SYNDROME [None]
